FAERS Safety Report 5411704-6 (Version None)
Quarter: 2007Q3

REPORT INFORMATION
  Report Type: 
  Country: None (occurrence: None)
  Receive Date: 20070810
  Receipt Date: 20070803
  Transmission Date: 20080115
  Serious: Yes (Life-Threatening, Hospitalization, Other)
  Sender: FDA-Public Use
  Company Number: DE-GENENTECH-240154

PATIENT
  Sex: Female
  Weight: 162 kg

DRUGS (9)
  1. RITUXAN [Suspect]
     Indication: NON-HODGKIN'S LYMPHOMA
     Dosage: 600 MG, QD
     Route: 042
     Dates: start: 20061201, end: 20070201
  2. AMIODARONE HCL [Suspect]
     Indication: VENTRICULAR EXTRASYSTOLES
     Dosage: 200 MG, QD
  3. VINCRISTINE [Concomitant]
     Indication: NON-HODGKIN'S LYMPHOMA
  4. DOXORUBICIN [Concomitant]
     Indication: NON-HODGKIN'S LYMPHOMA
     Dosage: 80 MG, QD
     Route: 042
     Dates: start: 20061201, end: 20070201
  5. CYCLOPHOSPHAMIDE [Concomitant]
     Indication: NON-HODGKIN'S LYMPHOMA
     Dosage: 1200 MG, QD
     Route: 042
     Dates: start: 20061201, end: 20070201
  6. PREDNISOLONE [Concomitant]
     Indication: NON-HODGKIN'S LYMPHOMA
     Dosage: 100 MG, QD
     Route: 048
     Dates: start: 20061201, end: 20070201
  7. ESOMEPRAZOLE MAGNESIUM [Concomitant]
     Indication: PROPHYLAXIS
     Dosage: 20 MG, QD
     Route: 048
  8. VITAMIN D [Concomitant]
     Indication: OSTEOPOROSIS
     Dosage: 1000 UNK, QD
     Route: 048
  9. INSULIN SC [Concomitant]
     Indication: DIABETES MELLITUS
     Dosage: 16 UNK, QD

REACTIONS (2)
  - COMA [None]
  - MENTAL DISORDER DUE TO A GENERAL MEDICAL CONDITION [None]
